FAERS Safety Report 7505696-3 (Version None)
Quarter: 2011Q2

REPORT INFORMATION
  Report Type: 
  Country: None (occurrence: None)
  Receive Date: 20110526
  Receipt Date: 20110523
  Transmission Date: 20111010
  Serious: Yes (Death, Other)
  Sender: FDA-Public Use
  Company Number: CO-PFIZER INC-2011081397

PATIENT
  Age: 66 Year
  Sex: Female

DRUGS (7)
  1. LOVASTATIN [Concomitant]
     Dosage: 40 MG, 1X/DAY
  2. FOLIC ACID [Concomitant]
     Dosage: UNK
     Route: 048
  3. LIPITOR [Suspect]
     Indication: DYSLIPIDAEMIA
     Dosage: 20 MG, 1X/DAY
     Route: 048
     Dates: start: 20040901
  4. FUROSEMIDE [Concomitant]
     Dosage: 40 MG, 1X/DAY
     Route: 048
     Dates: end: 20101127
  5. ERYTHROPOIETIN [Concomitant]
     Dosage: 2000 IU, THREE TIMES PER WEEK
  6. OLMESARTAN MEDOXOMIL [Suspect]
     Indication: HYPERTENSION
     Dosage: OLMESARTAN 20 MG / HYDROCHLOROTHIAZIDE 12.5 MG, DAILY
     Route: 048
     Dates: start: 20040901
  7. METFORMIN [Concomitant]
     Dosage: 850 MG, 1X/DAY
     Route: 048

REACTIONS (5)
  - SOFT TISSUE INFECTION [None]
  - RENAL FAILURE [None]
  - CARDIO-RESPIRATORY ARREST [None]
  - HYPERTENSION [None]
  - CARDIAC FAILURE [None]
